FAERS Safety Report 16638514 (Version 1)
Quarter: 2019Q3

REPORT INFORMATION
  Report Type: Spontaneous
  Country: US (occurrence: US)
  Receive Date: 20190726
  Receipt Date: 20190726
  Transmission Date: 20191004
  Serious: No
  Sender: FDA-Public Use
  Company Number: US-IPSEN BIOPHARMACEUTICALS, INC.-2014-2434

PATIENT

DRUGS (1)
  1. DYSPORT [Suspect]
     Active Substance: ABOBOTULINUMTOXINA
     Indication: SKIN WRINKLING
     Dosage: 50-80 UNITS
     Route: 065

REACTIONS (19)
  - Sinusitis [Unknown]
  - Bronchitis [Unknown]
  - Urinary tract infection [Unknown]
  - Angiopathy [Unknown]
  - Injection site bruising [Unknown]
  - Vision blurred [Unknown]
  - Overdose [Unknown]
  - Eye irritation [Unknown]
  - Influenza [Unknown]
  - Injection site pain [Unknown]
  - Hypertension [Unknown]
  - Blepharospasm [Unknown]
  - Headache [Unknown]
  - Nasal congestion [Unknown]
  - Laser therapy [Unknown]
  - Eyelid oedema [Unknown]
  - Nasopharyngitis [Unknown]
  - Cough [Unknown]
  - Eyelid ptosis [Unknown]
